FAERS Safety Report 14400735 (Version 1)
Quarter: 2018Q1

REPORT INFORMATION
  Report Type: Spontaneous
  Country: US (occurrence: US)
  Receive Date: 20180117
  Receipt Date: 20180117
  Transmission Date: 20180509
  Serious: Yes (Other)
  Sender: FDA-Public Use
  Company Number: US-CIPLA LTD.-2018US00927

PATIENT

DRUGS (16)
  1. LEVETIRACETAM. [Suspect]
     Active Substance: LEVETIRACETAM
     Indication: INFANTILE SPASMS
     Dosage: UNK
     Route: 065
  2. PREGABALIN. [Suspect]
     Active Substance: PREGABALIN
     Indication: GENERALISED TONIC-CLONIC SEIZURE
  3. RUFINAMIDE [Suspect]
     Active Substance: RUFINAMIDE
     Indication: GENERALISED TONIC-CLONIC SEIZURE
  4. LEVETIRACETAM. [Suspect]
     Active Substance: LEVETIRACETAM
     Indication: MYOCLONIC EPILEPSY
  5. LEVETIRACETAM. [Suspect]
     Active Substance: LEVETIRACETAM
     Indication: GENERALISED TONIC-CLONIC SEIZURE
  6. PREGABALIN. [Suspect]
     Active Substance: PREGABALIN
     Indication: INFANTILE SPASMS
     Dosage: UNK
     Route: 065
  7. CLOBAZAM [Suspect]
     Active Substance: CLOBAZAM
     Indication: GENERALISED TONIC-CLONIC SEIZURE
  8. RUFINAMIDE [Suspect]
     Active Substance: RUFINAMIDE
     Indication: INFANTILE SPASMS
     Dosage: UNK
     Route: 065
  9. RUFINAMIDE [Suspect]
     Active Substance: RUFINAMIDE
     Indication: PARTIAL SEIZURES
  10. LEVETIRACETAM. [Suspect]
     Active Substance: LEVETIRACETAM
     Indication: PARTIAL SEIZURES
  11. PREGABALIN. [Suspect]
     Active Substance: PREGABALIN
     Indication: PARTIAL SEIZURES
  12. PREGABALIN. [Suspect]
     Active Substance: PREGABALIN
     Indication: MYOCLONIC EPILEPSY
  13. CLOBAZAM [Suspect]
     Active Substance: CLOBAZAM
     Indication: MYOCLONIC EPILEPSY
  14. CLOBAZAM [Suspect]
     Active Substance: CLOBAZAM
     Indication: INFANTILE SPASMS
     Dosage: UNK
     Route: 065
  15. CLOBAZAM [Suspect]
     Active Substance: CLOBAZAM
     Indication: PARTIAL SEIZURES
  16. RUFINAMIDE [Suspect]
     Active Substance: RUFINAMIDE
     Indication: MYOCLONIC EPILEPSY

REACTIONS (1)
  - Epilepsy [Unknown]
